FAERS Safety Report 18460791 (Version 1)
Quarter: 2020Q4

REPORT INFORMATION
  Report Type: Report from Study
  Country: None (occurrence: US)
  Receive Date: 20201104
  Receipt Date: 20201104
  Transmission Date: 20210114
  Serious: Yes (Hospitalization)
  Sender: FDA-Public Use
  Company Number: US-ABBVIE-20K-163-3628280-00

PATIENT
  Sex: Female

DRUGS (2)
  1. HUMIRA [Suspect]
     Active Substance: ADALIMUMAB
     Indication: PSORIATIC ARTHROPATHY
     Route: 058
  2. HUMIRA [Suspect]
     Active Substance: ADALIMUMAB
     Indication: PSORIATIC ARTHROPATHY
     Route: 058
     Dates: start: 202002

REACTIONS (6)
  - Psoriasis [Recovering/Resolving]
  - Injection site erythema [Recovered/Resolved]
  - Unevaluable event [Unknown]
  - Injection site pain [Recovered/Resolved]
  - Nasal septum deviation [Unknown]
  - Dysphagia [Recovering/Resolving]
